FAERS Safety Report 13909927 (Version 3)
Quarter: 2017Q4

REPORT INFORMATION
  Report Type: Spontaneous
  Country: JP (occurrence: JP)
  Receive Date: 20170828
  Receipt Date: 20171018
  Transmission Date: 20180320
  Serious: Yes (Other)
  Sender: FDA-Public Use
  Company Number: JP-SUN PHARMACEUTICAL INDUSTRIES LTD-2017RR-148384

PATIENT
  Age: 62 Year
  Sex: Female

DRUGS (4)
  1. RISPERIDONE. [Suspect]
     Active Substance: RISPERIDONE
     Indication: MENTAL DISORDER
     Route: 065
  2. QUETIAPINE. [Suspect]
     Active Substance: QUETIAPINE
     Indication: MENTAL DISORDER
     Route: 065
  3. NITRAZEPAM [Concomitant]
     Active Substance: NITRAZEPAM
     Indication: MENTAL DISORDER
     Route: 065
  4. CLONAZEPAM. [Concomitant]
     Active Substance: CLONAZEPAM
     Indication: MENTAL DISORDER
     Route: 065

REACTIONS (3)
  - Retinal exudates [Recovered/Resolved]
  - Retinal vein occlusion [Recovered/Resolved]
  - Macular oedema [Recovered/Resolved]

NARRATIVE: CASE EVENT DATE: 201505
